FAERS Safety Report 22736915 (Version 7)
Quarter: 2024Q2

REPORT INFORMATION
  Report Type: Report from Study
  Country: JP (occurrence: JP)
  Receive Date: 20230721
  Receipt Date: 20240531
  Transmission Date: 20240716
  Serious: Yes (Death, Hospitalization)
  Sender: FDA-Public Use
  Company Number: JP-ABBVIE-5336434

PATIENT
  Age: 74 Year
  Sex: Female
  Weight: 42 kg

DRUGS (17)
  1. RINVOQ [Suspect]
     Active Substance: UPADACITINIB
     Indication: Rheumatoid arthritis
     Dosage: FORM STRENGTH  7.5 MILLIGRAM
     Route: 048
     Dates: start: 20201027, end: 20230407
  2. LANSOPRAZOLE [Concomitant]
     Active Substance: LANSOPRAZOLE
     Indication: Product used for unknown indication
     Route: 048
  3. SULFAMETHOXAZOLE AND TRIMETHOPRIM [Concomitant]
     Active Substance: SULFAMETHOXAZOLE\TRIMETHOPRIM
     Indication: Antifungal prophylaxis
     Dosage: 2 TABLETS/WEEK
     Route: 048
  4. CISPLATIN [Concomitant]
     Active Substance: CISPLATIN
     Indication: Neuroendocrine carcinoma
     Dosage: LAST ADMIN DATE: 2023
     Dates: start: 20230510
  5. CISPLATIN [Concomitant]
     Active Substance: CISPLATIN
     Indication: Neuroendocrine carcinoma
     Dates: start: 20230719
  6. CISPLATIN [Concomitant]
     Active Substance: CISPLATIN
     Indication: Neuroendocrine carcinoma
     Dosage: LAST ADMIN DATE: 2023
     Dates: start: 20230628
  7. CISPLATIN [Concomitant]
     Active Substance: CISPLATIN
     Indication: Neuroendocrine carcinoma
     Dosage: LAST ADMIN DATE: 2023
     Dates: start: 20230404
  8. CISPLATIN [Concomitant]
     Active Substance: CISPLATIN
     Indication: Neuroendocrine carcinoma
     Dosage: LAST ADMIN DATE: JUN 2023
     Dates: start: 20230606
  9. Stopan [Concomitant]
     Indication: Antifungal prophylaxis
     Dosage: 2 TABLETS/WEEK
     Route: 048
  10. METHOTREXATE [Concomitant]
     Active Substance: METHOTREXATE
     Indication: Rheumatoid arthritis
     Dates: start: 20190125
  11. ETOPOSIDE [Concomitant]
     Active Substance: ETOPOSIDE
     Indication: Neuroendocrine carcinoma
     Dosage: LAST ADMIN DATE: JUN 2023
     Dates: start: 20230606
  12. ETOPOSIDE [Concomitant]
     Active Substance: ETOPOSIDE
     Indication: Neuroendocrine carcinoma
     Dates: start: 20230719
  13. ETOPOSIDE [Concomitant]
     Active Substance: ETOPOSIDE
     Indication: Neuroendocrine carcinoma
     Dosage: LAST ADMIN DATE: 2023
     Dates: start: 20230628
  14. ETOPOSIDE [Concomitant]
     Active Substance: ETOPOSIDE
     Indication: Neuroendocrine carcinoma
     Dosage: LAST ADMIN DATE: 2023
     Dates: start: 20230404
  15. ETOPOSIDE [Concomitant]
     Active Substance: ETOPOSIDE
     Indication: Neuroendocrine carcinoma
     Dosage: LAST ADMIN DATE: 2023
     Dates: start: 20230510
  16. TOCOPHERYL NICOTINATE [Concomitant]
     Active Substance: TOCOPHERYL NICOTINATE, D-.ALPHA.
     Indication: Circulatory collapse
     Route: 048
  17. PREDNISOLONE [Concomitant]
     Active Substance: PREDNISOLONE
     Indication: Rheumatoid arthritis
     Dates: start: 20190125

REACTIONS (3)
  - Neuroendocrine carcinoma [Fatal]
  - Malignant ascites [Unknown]
  - Mechanical ileus [Unknown]

NARRATIVE: CASE EVENT DATE: 20230106
